FAERS Safety Report 9466016 (Version 1)
Quarter: 2013Q3

REPORT INFORMATION
  Report Type: Spontaneous
  Country: ES (occurrence: ES)
  Receive Date: 20130820
  Receipt Date: 20130820
  Transmission Date: 20140515
  Serious: Yes (Other)
  Sender: FDA-Public Use
  Company Number: ES-ROXANE LABORATORIES, INC.-2013-RO-01361RO

PATIENT
  Age: 51 Year
  Sex: Female

DRUGS (5)
  1. FUROSEMIDE [Suspect]
  2. DEFLAZACORT [Suspect]
     Indication: PSORIATIC ARTHROPATHY
     Route: 048
  3. SIMVASTATIN [Concomitant]
  4. FLUOXETINE [Concomitant]
  5. OMEPRAZOLE [Concomitant]

REACTIONS (1)
  - Gouty tophus [Recovered/Resolved]
